FAERS Safety Report 11397560 (Version 2)
Quarter: 2015Q4

REPORT INFORMATION
  Report Type: Spontaneous
  Country: US (occurrence: US)
  Receive Date: 20150819
  Receipt Date: 20151111
  Transmission Date: 20160304
  Serious: Yes (Other)
  Sender: FDA-Public Use
  Company Number: US-UCBSA-2015017911

PATIENT
  Age: 67 Year
  Sex: Female
  Weight: 116 kg

DRUGS (4)
  1. RAMIPRIL. [Concomitant]
     Active Substance: RAMIPRIL
     Indication: HYPERTENSION
     Dosage: 10 MG DAILY
     Route: 048
  2. TOPAMAX [Concomitant]
     Active Substance: TOPIRAMATE
     Indication: SEIZURE
     Dosage: UNK
     Dates: end: 2014
  3. VIMPAT [Suspect]
     Active Substance: LACOSAMIDE
     Indication: SEIZURE
     Dosage: 100 MG, 2X/DAY (BID)
     Route: 048
     Dates: start: 201410
  4. KEPPRA [Suspect]
     Active Substance: LEVETIRACETAM
     Indication: SEIZURE
     Dosage: 2X/DAY (BID) (2 TABLETS DAILY)
     Route: 048

REACTIONS (3)
  - Syncope [Recovered/Resolved]
  - Seizure [Unknown]
  - Road traffic accident [Unknown]

NARRATIVE: CASE EVENT DATE: 201410
